FAERS Safety Report 25079976 (Version 1)
Quarter: 2025Q1

REPORT INFORMATION
  Report Type: Spontaneous
  Country: ES (occurrence: ES)
  Receive Date: 20250314
  Receipt Date: 20250314
  Transmission Date: 20250409
  Serious: Yes (Hospitalization)
  Sender: BOEHRINGER INGELHEIM
  Company Number: ES-BoehringerIngelheim-2025-BI-014628

PATIENT
  Age: 66 Year
  Sex: Male

DRUGS (4)
  1. NINTEDANIB [Suspect]
     Active Substance: NINTEDANIB
     Indication: Pulmonary fibrosis
     Dates: start: 20240829, end: 20241003
  2. NINTEDANIB [Suspect]
     Active Substance: NINTEDANIB
     Dates: start: 20241003, end: 20241210
  3. NINTEDANIB [Suspect]
     Active Substance: NINTEDANIB
     Dates: start: 20241210, end: 20250221
  4. NINTEDANIB [Suspect]
     Active Substance: NINTEDANIB
     Dates: start: 20250221, end: 20250227

REACTIONS (1)
  - Myositis [Recovering/Resolving]

NARRATIVE: CASE EVENT DATE: 20241215
